FAERS Safety Report 14293237 (Version 1)
Quarter: 2017Q4

REPORT INFORMATION
  Report Type: Spontaneous
  Country: RS (occurrence: RS)
  Receive Date: 20171215
  Receipt Date: 20171215
  Transmission Date: 20180321
  Serious: Yes (Death, Hospitalization, Other)
  Sender: FDA-Public Use
  Company Number: RS-SEATTLE GENETICS-2017SGN03173

PATIENT
  Age: 26 Year
  Sex: Male

DRUGS (1)
  1. ADCETRIS [Suspect]
     Active Substance: BRENTUXIMAB VEDOTIN
     Indication: HODGKIN^S DISEASE
     Dosage: 100 MG, Q21D
     Route: 042
     Dates: start: 201709, end: 201710

REACTIONS (4)
  - Acute hepatic failure [Unknown]
  - Anaemia [Unknown]
  - Hodgkin^s disease [Fatal]
  - Hypoalbuminaemia [Unknown]

NARRATIVE: CASE EVENT DATE: 20171027
